FAERS Safety Report 11448862 (Version 4)
Quarter: 2019Q1

REPORT INFORMATION
  Report Type: Spontaneous
  Country: US (occurrence: US)
  Receive Date: 20150902
  Receipt Date: 20190226
  Transmission Date: 20190417
  Serious: Yes (Hospitalization, Other)
  Sender: FDA-Public Use
  Company Number: US-PFIZER INC-2015290189

PATIENT
  Age: 68 Year
  Sex: Female
  Weight: 74 kg

DRUGS (32)
  1. IMBRUVICA [Suspect]
     Active Substance: IBRUTINIB
     Indication: HAEMATOPOIETIC NEOPLASM
     Dosage: 100 MG, 3X/DAY
     Dates: start: 201412, end: 20150529
  2. ALBUTEROL [SALBUTAMOL] [Concomitant]
     Active Substance: ALBUTEROL
     Dosage: 90 ?G, AS NEEDED,2 PUFFS
  3. DOCUSATE SODIUM. [Concomitant]
     Active Substance: DOCUSATE SODIUM
     Dosage: 100 MG, 2X/DAY
  4. METFORMIN [Concomitant]
     Active Substance: METFORMIN HYDROCHLORIDE
     Dosage: 500 MG, 3X/DAY
  5. REVATIO [Suspect]
     Active Substance: SILDENAFIL CITRATE
     Indication: PULMONARY HYPERTENSION
     Dosage: 20 MG, THREE TIMES A DAY
     Dates: start: 2013
  6. REVATIO [Suspect]
     Active Substance: SILDENAFIL CITRATE
     Indication: STRONGYLOIDIASIS
     Dosage: 20 MG, 3X/DAY
     Route: 048
  7. BACLOFEN. [Concomitant]
     Active Substance: BACLOFEN
     Dosage: 10 MG, AS NEEDED (TAKE ONE (1) TABLET BY MOUTH EVERY SIX (6) HOURS AS NEEDED )
  8. THEOPHYLLINE [Concomitant]
     Active Substance: THEOPHYLLINE ANHYDROUS
     Dosage: 100 MG, 2X/DAY
  9. THEOPHYLLINE [Concomitant]
     Active Substance: THEOPHYLLINE ANHYDROUS
     Dosage: 100 MG, 2X/DAY (, 12 HR TAKE 1 TABLET(S) EVERY 12 HOURS BY ORAL ROUTE)
     Route: 048
     Dates: start: 20151005
  10. PREDNISONE. [Concomitant]
     Active Substance: PREDNISONE
     Dosage: 10 MG, 1X/DAY
     Route: 048
  11. LAMICTAL [Concomitant]
     Active Substance: LAMOTRIGINE
     Indication: SEIZURE
     Dosage: 100 MG, 2X/DAY
     Dates: start: 2018
  12. BACLOFEN. [Concomitant]
     Active Substance: BACLOFEN
     Indication: MUSCLE SPASMS
     Dosage: 10 MG, (3-4 TIMES A DAY BY EVERY 6 HOURS)
  13. SINGULAIR [Concomitant]
     Active Substance: MONTELUKAST SODIUM
     Dosage: 1 MG, DAILY
     Route: 048
  14. ALLOPURINOL. [Concomitant]
     Active Substance: ALLOPURINOL
     Dosage: 300 MG, DAILY
  15. DOK [Concomitant]
     Active Substance: DOCUSATE SODIUM
     Dosage: 100 MG, 2X/DAY
     Route: 048
  16. FUROSEMIDE. [Concomitant]
     Active Substance: FUROSEMIDE
     Dosage: 40 MG, 3X/DAY
  17. FUROSEMIDE. [Concomitant]
     Active Substance: FUROSEMIDE
     Dosage: 80 MG, 3X/DAY
  18. SINGULAIR [Concomitant]
     Active Substance: MONTELUKAST SODIUM
     Dosage: 10 MG, 1X/DAY
     Route: 048
  19. PANTOPRAZOLE [Concomitant]
     Active Substance: PANTOPRAZOLE
     Dosage: 40 MG, DAILY (DELAYED RELEASE TAKE 1 TABLET(S) EVERY DAY BY ORAL ROUTE AS DIRECTED)
     Route: 048
  20. SPIRONOLACTONE. [Concomitant]
     Active Substance: SPIRONOLACTONE
     Dosage: 50 MG, 2X/DAY
  21. PROMETHAZINE [Concomitant]
     Active Substance: PROMETHAZINE\PROMETHAZINE HYDROCHLORIDE
     Indication: NAUSEA
     Dosage: AS NEEDED (25 MG TABLET TAKE 0.5-1 TABLETS BY MOUTH EVERY SIX HOURS AS NEEDED)
  22. MIRALAX [Concomitant]
     Active Substance: POLYETHYLENE GLYCOL 3350
     Dosage: UNK
     Dates: start: 20140514
  23. TEMAZEPAM. [Concomitant]
     Active Substance: TEMAZEPAM
     Dosage: 30 MG, DAILY
     Route: 048
  24. PLAVIX [Concomitant]
     Active Substance: CLOPIDOGREL BISULFATE
     Dosage: 75 MG, 1X/DAY
  25. POTASSIUM CHLORIDE. [Concomitant]
     Active Substance: POTASSIUM CHLORIDE
     Dosage: 20 MEQ, DAILY
  26. POTASSIUM CHLORIDE. [Concomitant]
     Active Substance: POTASSIUM CHLORIDE
     Dosage: 1 DF, 2X/DAY (TAKE 1 TABLET(S) TWICE A DAY BY ORAL ROUTE AS DIRECTED)
     Route: 048
  27. ZOFRAN [Concomitant]
     Active Substance: ONDANSETRON HYDROCHLORIDE
     Indication: NAUSEA
     Dosage: 8 MG, ONE EVERY 8 HOURS AS NEEDED
     Route: 048
  28. MEPERIDINE [Concomitant]
     Active Substance: MEPERIDINE
     Indication: PAIN
     Dosage: 50 MG, UNK (TAKE 1 TABLETS EVERY 4 HOURS BY ORAL ROUTE AS NEEDED)
     Route: 048
  29. PROAIR HFA [Concomitant]
     Active Substance: ALBUTEROL SULFATE
     Dosage: 90 UG, AS NEEDED (90 MCG/ACTUATION AEROSOL INHALER INHALE 2 PUFF(S) 4 TIMES A DAY BY INHALATION )
     Route: 055
  30. PANTOPRAZOLE [Concomitant]
     Active Substance: PANTOPRAZOLE
     Dosage: 40 MG, 2X/DAY
  31. RESTORIL [TEMAZEPAM] [Concomitant]
     Indication: SLEEP DISORDER
     Dosage: 30 MG, DAILY (ONCE AT NIGHT )
  32. DEMEROL [Concomitant]
     Active Substance: MEPERIDINE HYDROCHLORIDE
     Dosage: 50 MG, AS NEEDED (EVERY 4 HOURS AS NEEDED)

REACTIONS (11)
  - Bing-Neel syndrome [Unknown]
  - Fluid retention [Unknown]
  - Neoplasm malignant [Unknown]
  - Sepsis [Recovering/Resolving]
  - Bronchitis [Recovering/Resolving]
  - Hemiplegia [Unknown]
  - Weight increased [Unknown]
  - Hypoaesthesia [Unknown]
  - Kidney infection [Recovering/Resolving]
  - Seizure [Unknown]
  - Nausea [Unknown]

NARRATIVE: CASE EVENT DATE: 2018
